FAERS Safety Report 25977721 (Version 3)
Quarter: 2025Q4

REPORT INFORMATION
  Report Type: Spontaneous
  Country: EU (occurrence: EU)
  Receive Date: 20251030
  Receipt Date: 20251212
  Transmission Date: 20260118
  Serious: Yes (Hospitalization)
  Sender: ABBVIE
  Company Number: None

PATIENT
  Age: 42 Year
  Sex: Female

DRUGS (5)
  1. RINVOQ [Suspect]
     Active Substance: UPADACITINIB
     Indication: Crohn^s disease
     Route: 048
     Dates: start: 20250702, end: 20250716
  2. Rectogesic [Concomitant]
     Indication: Crohn^s disease
     Dosage: 4 MG/G OINTMENT
     Route: 054
     Dates: start: 20230113, end: 20250716
  3. PREDNISONE [Concomitant]
     Active Substance: PREDNISONE
     Indication: Crohn^s disease
     Route: 048
     Dates: start: 20250310, end: 20250716
  4. CALCIUM CARBONATE\CHOLECALCIFEROL [Concomitant]
     Active Substance: CALCIUM CARBONATE\CHOLECALCIFEROL
     Indication: Crohn^s disease
     Dosage: 1,500 MG/400 IU CHEWABLE TABLETS
     Route: 048
     Dates: start: 20250331, end: 20250716
  5. PENTASA [Concomitant]
     Active Substance: MESALAMINE
     Indication: Crohn^s disease
     Dosage: 4 G PROLONGED-RELEASE GRANULES
     Route: 048
     Dates: start: 20230714, end: 20250716

REACTIONS (3)
  - Peripheral artery thrombosis [Recovering/Resolving]
  - Cerebral artery thrombosis [Recovered/Resolved with Sequelae]
  - Pulmonary embolism [Recovering/Resolving]

NARRATIVE: CASE EVENT DATE: 20250716
